FAERS Safety Report 20688382 (Version 2)
Quarter: 2022Q2

REPORT INFORMATION
  Report Type: Spontaneous
  Country: DE (occurrence: DE)
  Receive Date: 20220408
  Receipt Date: 20220414
  Transmission Date: 20220721
  Serious: Yes (Hospitalization, Other)
  Sender: FDA-Public Use
  Company Number: DE-ROCHE-3054598

PATIENT
  Age: 30 Year
  Sex: Male
  Weight: 67 kg

DRUGS (6)
  1. DOCETAXEL [Suspect]
     Active Substance: DOCETAXEL
     Indication: Adenocarcinoma gastric
     Dosage: 50 MILLIGRAM/SQ. METER, 0.5 WEEK (FOR 6 CYCLES)
     Route: 065
  2. LEUCOVORIN [Suspect]
     Active Substance: LEUCOVORIN
     Indication: Adenocarcinoma gastric
     Dosage: 200 MILLIGRAM/SQ. METER (FOR 6 CYCLES)
     Route: 065
  3. FLUOROURACIL [Suspect]
     Active Substance: FLUOROURACIL
     Indication: Adenocarcinoma gastric
     Dosage: 2400 MILLIGRAM/SQ. METER (FOR 24 HR. FOR 6 CYCLES)
     Route: 065
  4. OXALIPLATIN [Suspect]
     Active Substance: OXALIPLATIN
     Indication: Adenocarcinoma gastric
     Dosage: 85 MILLIGRAM/SQ. METER (FOR 6 CYCLES)
     Route: 065
  5. TRASTUZUMAB [Suspect]
     Active Substance: TRASTUZUMAB
     Indication: Adenocarcinoma gastric
     Dosage: 4 MILLIGRAM/KILOGRAM
     Route: 065
  6. FILGRASTIM [Concomitant]
     Active Substance: FILGRASTIM
     Indication: Product used for unknown indication
     Dosage: UNK (ADMINISTERED ON DAYS 4-6)
     Route: 058

REACTIONS (12)
  - Tumour lysis syndrome [Recovered/Resolved]
  - Polyserositis [Recovered/Resolved]
  - Onycholysis [Recovered/Resolved]
  - Eczema [Recovered/Resolved]
  - Paronychia [Recovered/Resolved]
  - Erythema [Recovered/Resolved]
  - Skin reaction [Recovered/Resolved]
  - Pleural effusion [Recovered/Resolved]
  - Ascites [Recovered/Resolved]
  - Hepatic function abnormal [Recovered/Resolved]
  - Haematotoxicity [Recovered/Resolved]
  - Polyneuropathy [Recovered/Resolved]
